FAERS Safety Report 6038521-0 (Version None)
Quarter: 2009Q1

REPORT INFORMATION
  Report Type: 
  Country: None (occurrence: None)
  Receive Date: 20090115
  Receipt Date: 20071203
  Transmission Date: 20090719
  Serious: No
  Sender: FDA-Public Use
  Company Number: US-KINGPHARMUSA00001-K200701562

PATIENT
  Sex: Male
  Weight: 21.315 kg

DRUGS (2)
  1. EPIPEN JR. [Suspect]
     Indication: MILK ALLERGY
     Route: 030
     Dates: start: 20071202
  2. SINGULAIR [Concomitant]
     Indication: ASTHMA

REACTIONS (1)
  - LACERATION [None]
